FAERS Safety Report 8917467 (Version 1)
Quarter: 2012Q4

REPORT INFORMATION
  Report Type: 
  Country: NO (occurrence: NO)
  Receive Date: 20121120
  Receipt Date: 20121120
  Transmission Date: 20130627
  Serious: Yes (Hospitalization)
  Sender: FDA-Public Use
  Company Number: NO-PFIZER INC-2012287444

PATIENT
  Age: 39 Year
  Sex: Male

DRUGS (3)
  1. LYRICA [Suspect]
     Dosage: 300 mg, UNK
     Route: 048
  2. LYRICA [Suspect]
     Dosage: 1200 mg per day
     Route: 048
  3. SUBUTEX [Concomitant]
     Indication: SUBSTANCE ABUSE
     Dosage: 20 mg, 1x/day

REACTIONS (11)
  - Euphoric mood [Recovering/Resolving]
  - Drug abuse [Recovering/Resolving]
  - Substance abuse [Recovering/Resolving]
  - Drug dependence [Recovering/Resolving]
  - Drug tolerance [Recovering/Resolving]
  - Withdrawal syndrome [Recovering/Resolving]
  - Diarrhoea [Recovering/Resolving]
  - Hyperhidrosis [Recovering/Resolving]
  - Feeling cold [Recovering/Resolving]
  - Decreased appetite [Recovering/Resolving]
  - Listless [Recovering/Resolving]
